FAERS Safety Report 8439747-9 (Version None)
Quarter: 2012Q2

REPORT INFORMATION
  Report Type: 
  Country: None (occurrence: None)
  Receive Date: 20120611
  Receipt Date: 20120611
  Transmission Date: 20120825
  Serious: Yes (Life-Threatening, Other)
  Sender: FDA-Public Use
  Company Number: None

PATIENT
  Age: 9 Year
  Sex: Female
  Weight: 49.8957 kg

DRUGS (2)
  1. EQUATE DAYTIME COLD AND FLU ACETAMIN. 325MG DEXTROMETHORP EQUATE / WAL [Suspect]
     Indication: NASOPHARYNGITIS
     Dosage: 15 ML -1TBSP- EVERY 4 HOURS PO
     Route: 048
     Dates: start: 20120530, end: 20120601
  2. EQUATE DAYTIME COLD AND FLU PHENYLEPHRINE HCI 5MG [Suspect]

REACTIONS (5)
  - DIZZINESS [None]
  - PALPITATIONS [None]
  - FEELING ABNORMAL [None]
  - CHEST PAIN [None]
  - VERTIGO [None]
